FAERS Safety Report 7334403-2 (Version None)
Quarter: 2011Q1

REPORT INFORMATION
  Report Type: 
  Country: None (occurrence: None)
  Receive Date: 20110302
  Receipt Date: 20110302
  Transmission Date: 20110831
  Serious: Yes (Hospitalization)
  Sender: FDA-Public Use
  Company Number: None

PATIENT
  Age: 82 Year
  Sex: Male
  Weight: 87 kg

DRUGS (1)
  1. TERAZOSIN HCL [Suspect]
     Dosage: 10 MG AT BEDTIME PO
     Route: 048
     Dates: start: 20100503, end: 20100703

REACTIONS (4)
  - DIZZINESS [None]
  - SYNCOPE [None]
  - HYPOTENSION [None]
  - PRESYNCOPE [None]
